FAERS Safety Report 15237855 (Version 1)
Quarter: 2018Q3

REPORT INFORMATION
  Report Type: Report from Study
  Country: CA (occurrence: CA)
  Receive Date: 20180803
  Receipt Date: 20180803
  Transmission Date: 20181010
  Serious: Yes (Hospitalization)
  Sender: FDA-Public Use
  Company Number: CA-JNJFOC-20180733796

PATIENT
  Age: 32 Year
  Sex: Male

DRUGS (1)
  1. STELARA [Suspect]
     Active Substance: USTEKINUMAB
     Indication: CROHN^S DISEASE
     Dosage: STRENGTH = 90 MG
     Route: 058
     Dates: start: 20160331

REACTIONS (6)
  - Pancreatitis [Recovering/Resolving]
  - Hepatic infection [Recovering/Resolving]
  - Abdominal pain [Unknown]
  - Off label use [Unknown]
  - Product use issue [Unknown]
  - Cholecystitis [Recovering/Resolving]

NARRATIVE: CASE EVENT DATE: 20160331
